FAERS Safety Report 13287597 (Version 2)
Quarter: 2017Q1

REPORT INFORMATION
  Report Type: Report from Study
  Country: BR (occurrence: BR)
  Receive Date: 20170302
  Receipt Date: 20170314
  Transmission Date: 20170428
  Serious: Yes (Hospitalization, Other)
  Sender: FDA-Public Use
  Company Number: PHHY2016BR179530

PATIENT
  Age: 54 Year
  Sex: Female
  Weight: 42 kg

DRUGS (2)
  1. AFINITOR [Suspect]
     Active Substance: EVEROLIMUS
     Indication: BREAST CANCER METASTATIC
     Dosage: 10 MG, QD
     Route: 048
     Dates: start: 201612, end: 20170222
  2. AROMASIN [Concomitant]
     Active Substance: EXEMESTANE
     Indication: BREAST CANCER
     Dosage: UNK (FOR THREE MONTHS)
     Route: 065

REACTIONS (12)
  - Dizziness [Unknown]
  - Cough [Unknown]
  - Musculoskeletal chest pain [Unknown]
  - Lung disorder [Unknown]
  - Vomiting [Unknown]
  - Weight decreased [Unknown]
  - Malaise [Unknown]
  - Coma [Unknown]
  - Diarrhoea [Unknown]
  - Pain in extremity [Unknown]
  - Retching [Unknown]
  - Muscle spasms [Unknown]

NARRATIVE: CASE EVENT DATE: 20170222
